FAERS Safety Report 4721776-X (Version None)
Quarter: 2005Q3

REPORT INFORMATION
  Report Type: 
  Country: None (occurrence: None)
  Receive Date: 20050722
  Receipt Date: 20050707
  Transmission Date: 20060218
  Serious: Yes (Death)
  Sender: FDA-Public Use
  Company Number: 200512125JP

PATIENT
  Sex: Female

DRUGS (1)
  1. RILUTEK [Suspect]
     Dates: start: 20021226

REACTIONS (1)
  - LUNG NEOPLASM MALIGNANT [None]
